FAERS Safety Report 16065064 (Version 1)
Quarter: 2019Q1

REPORT INFORMATION
  Report Type: Spontaneous
  Country: US (occurrence: US)
  Receive Date: 20190313
  Receipt Date: 20190313
  Transmission Date: 20190418
  Serious: Yes (Other)
  Sender: FDA-Public Use
  Company Number: US-TORRENT-00007782

PATIENT
  Age: 43 Year

DRUGS (1)
  1. LOSARTAN. [Suspect]
     Active Substance: LOSARTAN
     Indication: HYPERTENSION
     Dosage: 1 PER DAY

REACTIONS (2)
  - Blepharospasm [Unknown]
  - Rash [Unknown]

NARRATIVE: CASE EVENT DATE: 20190225
